APPROVED DRUG PRODUCT: TIOPRONIN
Active Ingredient: TIOPRONIN
Strength: 100MG
Dosage Form/Route: TABLET, DELAYED RELEASE;ORAL
Application: A216278 | Product #002 | TE Code: AB
Applicant: AMNEAL EU LTD
Approved: Aug 29, 2025 | RLD: No | RS: No | Type: RX